FAERS Safety Report 19268873 (Version 2)
Quarter: 2021Q2

REPORT INFORMATION
  Report Type: Report from Study
  Country: AR (occurrence: AR)
  Receive Date: 20210518
  Receipt Date: 20210527
  Transmission Date: 20210717
  Serious: Yes (Hospitalization)
  Sender: FDA-Public Use
  Company Number: NVSC2021AR106353

PATIENT
  Age: 13 Year
  Sex: Female
  Weight: 96 kg

DRUGS (2)
  1. TRAMETINIB [Suspect]
     Active Substance: TRAMETINIB
     Indication: CRANIOPHARYNGIOMA
     Dosage: 2 MG
     Route: 048
     Dates: start: 20210224, end: 20210407
  2. DABRAFENIB [Suspect]
     Active Substance: DABRAFENIB
     Indication: CRANIOPHARYNGIOMA
     Dosage: UNK
     Route: 048

REACTIONS (2)
  - Hepatic steatosis [Unknown]
  - Hepatotoxicity [Recovering/Resolving]

NARRATIVE: CASE EVENT DATE: 20210325
